FAERS Safety Report 5741929-1 (Version None)
Quarter: 2008Q2

REPORT INFORMATION
  Report Type: 
  Country: None (occurrence: None)
  Receive Date: 20080519
  Receipt Date: 20070906
  Transmission Date: 20081010
  Serious: Yes (Other)
  Sender: FDA-Public Use
  Company Number: US-KINGPHARMUSA00001-K200701149

PATIENT

DRUGS (1)
  1. TAPAZOLE [Suspect]
     Indication: BASEDOW'S DISEASE
     Dosage: 10 MG, TID
     Route: 048
     Dates: end: 20070823

REACTIONS (1)
  - AGEUSIA [None]
